FAERS Safety Report 15400926 (Version 1)
Quarter: 2018Q3

REPORT INFORMATION
  Report Type: Report from Study
  Country: US (occurrence: US)
  Receive Date: 20180919
  Receipt Date: 20180919
  Transmission Date: 20181010
  Serious: Yes (Hospitalization)
  Sender: FDA-Public Use
  Company Number: US-JNJFOC-20180914581

PATIENT
  Age: 71 Year
  Sex: Male
  Weight: 87 kg

DRUGS (12)
  1. ABIRATERONE ACETATE. [Suspect]
     Active Substance: ABIRATERONE ACETATE
     Indication: HORMONE-REFRACTORY PROSTATE CANCER
     Route: 048
     Dates: start: 20180625
  2. LEUPROLIDE ACETATE. [Concomitant]
     Active Substance: LEUPROLIDE ACETATE
     Indication: PROSTATE CANCER
     Route: 065
     Dates: start: 201002
  3. AMLODIPINE [Concomitant]
     Active Substance: AMLODIPINE BESYLATE
     Indication: HYPERTENSION
     Route: 048
     Dates: start: 2015
  4. TIZANIDINE. [Concomitant]
     Active Substance: TIZANIDINE
     Indication: MUSCLE SPASMS
     Route: 048
     Dates: start: 20180627
  5. IBUPROFEN. [Concomitant]
     Active Substance: IBUPROFEN
     Indication: PAIN
     Route: 048
     Dates: start: 2017
  6. ENOXAPARIN [Concomitant]
     Active Substance: ENOXAPARIN
     Indication: CEREBROVASCULAR ACCIDENT
     Route: 058
     Dates: start: 20180719
  7. PRILOSEC [Concomitant]
     Active Substance: OMEPRAZOLE MAGNESIUM
     Indication: DYSPEPSIA
     Route: 048
     Dates: start: 20180712
  8. VOLTAREN [Concomitant]
     Active Substance: DICLOFENAC SODIUM
     Indication: PAIN
     Route: 061
     Dates: start: 2016
  9. CALCIUM CITRATE [Concomitant]
     Active Substance: CALCIUM CITRATE
     Indication: NUTRITIONAL SUPPLEMENTATION
     Route: 048
     Dates: start: 2015
  10. ACETAMINOPHEN. [Concomitant]
     Active Substance: ACETAMINOPHEN
     Indication: MUSCULOSKELETAL PAIN
     Route: 065
     Dates: start: 2016
  11. VITAMIN D3 [Concomitant]
     Active Substance: CHOLECALCIFEROL
     Indication: NUTRITIONAL SUPPLEMENTATION
     Route: 048
     Dates: start: 2015
  12. PROLIA [Concomitant]
     Active Substance: DENOSUMAB
     Indication: OSTEOPENIA
     Route: 058
     Dates: start: 201706

REACTIONS (3)
  - Colitis [Recovered/Resolved]
  - Alanine aminotransferase increased [Recovered/Resolved]
  - Aspartate aminotransferase increased [Recovered/Resolved]

NARRATIVE: CASE EVENT DATE: 20180808
